FAERS Safety Report 7405117-5 (Version None)
Quarter: 2011Q2

REPORT INFORMATION
  Report Type: 
  Country: None (occurrence: None)
  Receive Date: 20110404
  Receipt Date: 20110329
  Transmission Date: 20111010
  Serious: Yes (Hospitalization, Other)
  Sender: FDA-Public Use
  Company Number: 2010SP006056

PATIENT
  Age: 32 Year
  Sex: Female
  Weight: 94.8018 kg

DRUGS (2)
  1. NUVARING [Suspect]
     Indication: CONTRACEPTION
     Dates: start: 20090201
  2. CELEXA [Concomitant]

REACTIONS (10)
  - ATELECTASIS [None]
  - OVARIAN CYST [None]
  - UPPER RESPIRATORY TRACT INFECTION [None]
  - SINUS TACHYCARDIA [None]
  - PLEURISY [None]
  - SINUSITIS [None]
  - PULMONARY EMBOLISM [None]
  - HYPERCOAGULATION [None]
  - DYSMENORRHOEA [None]
  - PULMONARY INFARCTION [None]
